FAERS Safety Report 24533337 (Version 1)
Quarter: 2024Q4

REPORT INFORMATION
  Report Type: Spontaneous
  Country: US (occurrence: None)
  Receive Date: 20241018
  Receipt Date: 20241018
  Transmission Date: 20250115
  Serious: Yes (Life-Threatening)
  Sender: Public
  Company Number: None

PATIENT
  Age: 80 Year
  Sex: Male
  Weight: 70.31 kg

DRUGS (2)
  1. DUTASTERIDE\HYDROCORTISONE\MINOXIDIL\TRETINOIN [Suspect]
     Active Substance: DUTASTERIDE\HYDROCORTISONE\MINOXIDIL\TRETINOIN
     Dosage: FREQUENCY : TWICE A DAY;?
     Route: 061
  2. GRAPEFRUIT JUICE [Suspect]
     Active Substance: GRAPEFRUIT JUICE

REACTIONS (2)
  - Toxicity to various agents [None]
  - Atrial fibrillation [None]

NARRATIVE: CASE EVENT DATE: 20230412
